FAERS Safety Report 15493978 (Version 1)
Quarter: 2018Q4

REPORT INFORMATION
  Report Type: Spontaneous
  Country: FR (occurrence: FR)
  Receive Date: 20181012
  Receipt Date: 20181012
  Transmission Date: 20190205
  Serious: Yes (Hospitalization)
  Sender: FDA-Public Use
  Company Number: FR-OTSUKA-2018_033007

PATIENT
  Age: 30 Year
  Sex: Male

DRUGS (9)
  1. MODIODAL [Suspect]
     Active Substance: MODAFINIL
     Indication: NARCOLEPSY
  2. ABILIFY [Suspect]
     Active Substance: ARIPIPRAZOLE
     Indication: DEPRESSION
     Dosage: 10 MG, UNK
     Route: 065
  3. ABILIFY [Suspect]
     Active Substance: ARIPIPRAZOLE
     Indication: NARCOLEPSY
     Dosage: 20 MG, UNK
     Route: 065
  4. MODIODAL [Suspect]
     Active Substance: MODAFINIL
     Indication: WAXY FLEXIBILITY
     Dosage: 500 MG, QD
     Route: 065
     Dates: end: 201809
  5. RISPERDAL [Suspect]
     Active Substance: RISPERIDONE
     Indication: NARCOLEPSY
     Dosage: 2 MG, UNK
     Route: 065
  6. XYREM [Suspect]
     Active Substance: SODIUM OXYBATE
     Indication: NARCOLEPSY
     Dosage: 7.5 MG, QD
     Route: 065
     Dates: end: 201809
  7. RISPERDAL [Suspect]
     Active Substance: RISPERIDONE
     Indication: HALLUCINATION, AUDITORY
  8. RISPERDAL [Suspect]
     Active Substance: RISPERIDONE
     Indication: PSYCHOTIC DISORDER
  9. ABILIFY [Suspect]
     Active Substance: ARIPIPRAZOLE
     Dosage: 30 MG, UNK
     Route: 065

REACTIONS (5)
  - Adverse event [Unknown]
  - Magical thinking [Unknown]
  - Hallucination, auditory [Recovering/Resolving]
  - Mental disorder [Unknown]
  - Product use in unapproved indication [Unknown]

NARRATIVE: CASE EVENT DATE: 201702
